FAERS Safety Report 20556202 (Version 4)
Quarter: 2022Q2

REPORT INFORMATION
  Report Type: Spontaneous
  Country: US (occurrence: US)
  Receive Date: 20220305
  Receipt Date: 20220611
  Transmission Date: 20220720
  Serious: Yes (Hospitalization, Other)
  Sender: FDA-Public Use
  Company Number: US-UNITED THERAPEUTICS-UNT-2022-004816

PATIENT
  Age: 25 Year
  Sex: Female
  Weight: 58.957 kg

DRUGS (4)
  1. REMODULIN [Suspect]
     Active Substance: TREPROSTINIL
     Indication: Pulmonary arterial hypertension
     Dosage: UNK, CONTINUING
     Route: 041
     Dates: start: 20140424
  2. REMODULIN [Suspect]
     Active Substance: TREPROSTINIL
     Dosage: 0.040 ?G/KG, CONTINUING
     Route: 041
  3. COUMADIN [Concomitant]
     Active Substance: WARFARIN SODIUM
     Indication: Product used for unknown indication
     Dosage: UNK
     Route: 065
  4. REVATIO [Concomitant]
     Active Substance: SILDENAFIL CITRATE
     Indication: Product used for unknown indication
     Dosage: UNK
     Route: 065

REACTIONS (7)
  - Device issue [Unknown]
  - Vascular device infection [Unknown]
  - Infection [Unknown]
  - Maternal exposure during pregnancy [Recovered/Resolved]
  - Unwanted pregnancy [Recovered/Resolved]
  - Maternal exposure during breast feeding [Unknown]
  - Live birth [Recovered/Resolved]

NARRATIVE: CASE EVENT DATE: 20220301
